FAERS Safety Report 5945390-3 (Version None)
Quarter: 2008Q4

REPORT INFORMATION
  Report Type: 
  Country: None (occurrence: None)
  Receive Date: 20081107
  Receipt Date: 20081028
  Transmission Date: 20090506
  Serious: Yes (Other)
  Sender: FDA-Public Use
  Company Number: PT-JNJFOC-20081006636

PATIENT

DRUGS (8)
  1. INFLIXIMAB [Suspect]
     Route: 042
  2. INFLIXIMAB [Suspect]
     Route: 042
  3. INFLIXIMAB [Suspect]
     Route: 042
  4. INFLIXIMAB [Suspect]
     Route: 042
  5. INFLIXIMAB [Suspect]
     Route: 042
  6. INFLIXIMAB [Suspect]
     Indication: CROHN'S DISEASE
     Route: 042
  7. PREDNISOLONE [Concomitant]
     Indication: PREMEDICATION
  8. CLEMASTINE FUMARATE [Concomitant]
     Indication: PREMEDICATION

REACTIONS (3)
  - ASTHENIA [None]
  - INFUSION RELATED REACTION [None]
  - MALAISE [None]
